FAERS Safety Report 6665158-2 (Version None)
Quarter: 2010Q2

REPORT INFORMATION
  Report Type: 
  Country: None (occurrence: None)
  Receive Date: 20100402
  Receipt Date: 20100324
  Transmission Date: 20101027
  Serious: Yes (Other)
  Sender: FDA-Public Use
  Company Number: US-JNJFOC-20100307510

PATIENT
  Sex: Male
  Weight: 147.42 kg

DRUGS (13)
  1. FENTANYL CITRATE [Suspect]
     Indication: PAIN
     Dosage: 100 AND 25 UG/HR PATCH
     Route: 062
  2. FENTANYL CITRATE [Suspect]
     Route: 062
  3. FENTANYL CITRATE [Suspect]
     Indication: PAIN
     Route: 062
  4. FENTANYL CITRATE [Suspect]
     Route: 062
  5. FENTANYL CITRATE [Suspect]
     Indication: PAIN
     Route: 062
  6. SOMA [Concomitant]
     Indication: MUSCLE RELAXANT THERAPY
     Route: 048
  7. AMBIEN [Concomitant]
     Indication: SLEEP DISORDER
     Route: 048
  8. HYDROCODONE [Concomitant]
     Indication: PAIN
     Dosage: 10/325
     Route: 048
  9. ATENOLOL [Concomitant]
     Indication: CARDIAC DISORDER
     Dosage: 10/325
     Route: 048
  10. DILTIAZEM HCL [Concomitant]
     Indication: CARDIAC DISORDER
     Dosage: 10/325
     Route: 048
  11. HALOPERIDOL [Concomitant]
     Indication: BIPOLAR DISORDER
     Route: 048
  12. FLUOXETINE [Concomitant]
     Indication: BIPOLAR DISORDER
     Route: 048
  13. ASPIRIN [Concomitant]
     Indication: CARDIAC DISORDER
     Route: 048

REACTIONS (9)
  - APPLICATION SITE REACTION [None]
  - ARTHRALGIA [None]
  - CELLULITIS [None]
  - DRUG INEFFECTIVE [None]
  - NASOPHARYNGITIS [None]
  - PHARYNGITIS STREPTOCOCCAL [None]
  - THERAPEUTIC RESPONSE DECREASED [None]
  - WEIGHT DECREASED [None]
  - WRONG TECHNIQUE IN DRUG USAGE PROCESS [None]
